FAERS Safety Report 14475134 (Version 1)
Quarter: 2018Q1

REPORT INFORMATION
  Report Type: Other
  Country: CZ (occurrence: CZ)
  Receive Date: 20180201
  Receipt Date: 20180201
  Transmission Date: 20180509
  Serious: Yes (Life-Threatening, Hospitalization)
  Sender: FDA-Public Use
  Company Number: CZ-NOSTRUM LABORATORIES, INC.-2041218

PATIENT
  Age: 42 Year
  Sex: Male

DRUGS (1)
  1. MORPHINE SULFATE. [Suspect]
     Active Substance: MORPHINE SULFATE
     Indication: ANGINA PECTORIS
     Route: 042

REACTIONS (1)
  - Ventricular fibrillation [Recovered/Resolved]
